FAERS Safety Report 5654490-7 (Version None)
Quarter: 2008Q1

REPORT INFORMATION
  Report Type: 
  Country: None (occurrence: None)
  Receive Date: 20080205
  Receipt Date: 20070403
  Transmission Date: 20080703
  Serious: Yes (Hospitalization)
  Sender: FDA-Public Use
  Company Number: MEDI-0005485

PATIENT
  Age: 67 Year
  Sex: Female
  Weight: 77.5651 kg

DRUGS (12)
  1. ETHYOL [Suspect]
     Indication: SLEEP DISORDER
     Dosage: 500 MG, 5 IN 5 D, SUBCUTANEOUS
     Route: 058
     Dates: start: 20070215, end: 20070228
  2. ENALAPRIL MALEATE [Concomitant]
  3. OMEPRAZOLE [Concomitant]
  4. ALPRAZOLAM [Concomitant]
  5. ZOCOR [Concomitant]
  6. MULTIVITAMIN [Concomitant]
  7. FISH OIL (FISH OIL) [Concomitant]
  8. ASPIRIN TAB [Concomitant]
  9. VITAMIN (ASCORBIC ACID) [Concomitant]
  10. ELAVIL [Concomitant]
  11. RADIATION THERAPY [Concomitant]
  12. ZYRTEC [Concomitant]

REACTIONS (1)
  - HYPERSENSITIVITY [None]
